FAERS Safety Report 15118792 (Version 1)
Quarter: 2018Q3

REPORT INFORMATION
  Report Type: Other
  Country: IT (occurrence: IT)
  Receive Date: 20180709
  Receipt Date: 20180709
  Transmission Date: 20181010
  Serious: Yes (Death)
  Sender: FDA-Public Use
  Company Number: IT-ORCHID HEALTHCARE-2051550

PATIENT
  Age: 43 Year
  Sex: Female

DRUGS (1)
  1. OLANZAPINE. [Suspect]
     Active Substance: OLANZAPINE
     Indication: PSYCHOTIC DISORDER
     Route: 065

REACTIONS (20)
  - Pyrexia [Fatal]
  - Loss of consciousness [Fatal]
  - Oculogyric crisis [Fatal]
  - Blood potassium decreased [Fatal]
  - Atrial fibrillation [Fatal]
  - Arrhythmia [Fatal]
  - Eyelid ptosis [Fatal]
  - Muscle atrophy [Fatal]
  - Bedridden [Fatal]
  - Head discomfort [Fatal]
  - Dystonia [Fatal]
  - Pancytopenia [Fatal]
  - Procalcitonin increased [Fatal]
  - Gait disturbance [Fatal]
  - Ventricular fibrillation [Fatal]
  - Movement disorder [Fatal]
  - Bradycardia [Fatal]
  - Amino acid metabolism disorder [Fatal]
  - Decubitus ulcer [Fatal]
  - Eye disorder [Fatal]
